FAERS Safety Report 9742215 (Version 4)
Quarter: 2014Q2

REPORT INFORMATION
  Report Type: Spontaneous
  Country: US (occurrence: US)
  Receive Date: 20131210
  Receipt Date: 20140409
  Transmission Date: 20141212
  Serious: Yes (Hospitalization, Other)
  Sender: FDA-Public Use
  Company Number: US-ASTELLAS-2013US012289

PATIENT
  Age: 49 Year
  Sex: Female
  Weight: 94 kg

DRUGS (14)
  1. PROGRAF [Suspect]
     Indication: RENAL TRANSPLANT
     Dosage: 4 MG, UID/QD
     Route: 048
     Dates: start: 20000209
  2. PROGRAF [Suspect]
     Indication: PANCREAS TRANSPLANT
  3. ASPIRIN [Concomitant]
     Indication: PRODUCT USED FOR UNKNOWN INDICATION
     Dosage: 81 MG, UID/QD
     Route: 065
  4. LASIX                              /00032601/ [Concomitant]
     Indication: OEDEMA
     Dosage: 20 MG, UID/QD
     Route: 048
     Dates: start: 20000209
  5. OMPRAZOLE [Concomitant]
     Indication: PRODUCT USED FOR UNKNOWN INDICATION
     Dosage: 20 MG, UNKNOWN/D
     Route: 065
  6. PREDNISONE [Concomitant]
     Indication: PRODUCT USED FOR UNKNOWN INDICATION
     Dosage: 5 MG, UNKNOWN/D
     Route: 065
     Dates: end: 20000209
  7. PREDNISONE [Concomitant]
     Dosage: 2 MG, UID/QD
     Route: 065
  8. ZOLOFT [Concomitant]
     Indication: PRODUCT USED FOR UNKNOWN INDICATION
     Dosage: 50 MG, UNKNOWN/D
     Route: 065
  9. AMLODIPIN                          /00972401/ [Concomitant]
     Indication: HYPERTENSION
     Dosage: 5 MG, UID/QD
     Route: 048
     Dates: start: 20000209
  10. GUANFACINE [Concomitant]
     Indication: HYPERTENSION
     Dosage: 1 MG, UID/QD
     Route: 048
     Dates: start: 20000209
  11. AVAPRO [Concomitant]
     Indication: HYPERTENSION
     Dosage: 75 MG, UID/QD
     Route: 048
     Dates: start: 20000209
  12. OMEPRAZOLE [Concomitant]
     Indication: DYSPEPSIA
     Dosage: 20 MG, UID/QD
     Route: 048
     Dates: start: 20000209
  13. PRAVASTATIN [Concomitant]
     Indication: IMMUNOSUPPRESSANT DRUG THERAPY
     Dosage: 5 MG, UID/QD
     Route: 048
     Dates: start: 20000209
  14. SERTRALINE [Concomitant]
     Indication: DEPRESSION
     Dosage: 50 MG, UID/QD
     Route: 048
     Dates: start: 20000209

REACTIONS (6)
  - Off label use [Unknown]
  - Cerebrovascular accident [Recovering/Resolving]
  - Transient ischaemic attack [Recovered/Resolved]
  - Transient ischaemic attack [Recovering/Resolving]
  - Aphasia [Recovering/Resolving]
  - Blindness unilateral [Recovering/Resolving]
